FAERS Safety Report 8963821 (Version 1)
Quarter: 2012Q4

REPORT INFORMATION
  Report Type: 
  Country: US (occurrence: US)
  Receive Date: 20121214
  Receipt Date: 20121214
  Transmission Date: 20130627
  Serious: No
  Sender: FDA-Public Use
  Company Number: US-BAYER-2012-124387

PATIENT
  Age: 53 Year
  Sex: Female
  Weight: 52.15 kg

DRUGS (5)
  1. BETASERON [Suspect]
     Dosage: 0.3 mg, QOD
  2. LISINOPRIL [Concomitant]
     Dosage: UNK
  3. METOPROLOL [Concomitant]
     Dosage: UNK
  4. TRAZODONE [Concomitant]
     Dosage: UNK mg, UNK
  5. MULTIVITAMIN [Concomitant]

REACTIONS (2)
  - Injection site erythema [Unknown]
  - Injection site swelling [Unknown]
